FAERS Safety Report 9680873 (Version 1)
Quarter: 2013Q4

REPORT INFORMATION
  Report Type: Spontaneous
  Country: US (occurrence: None)
  Receive Date: 20131108
  Receipt Date: 20131108
  Transmission Date: 20140711
  Serious: Yes (Other)
  Sender: FDA-Public Use
  Company Number: None

PATIENT
  Age: 59 Year
  Sex: Male

DRUGS (1)
  1. MODAFINIL [Suspect]
     Dosage: 100 MG, QAM, PO
     Route: 048
     Dates: start: 20130906, end: 201310

REACTIONS (3)
  - Urticaria [None]
  - Pruritus [None]
  - Stomatitis [None]
